APPROVED DRUG PRODUCT: AMOXICILLIN AND CLAVULANATE POTASSIUM
Active Ingredient: AMOXICILLIN; CLAVULANATE POTASSIUM
Strength: 400MG;EQ 57MG BASE
Dosage Form/Route: TABLET, CHEWABLE;ORAL
Application: A065205 | Product #002
Applicant: TEVA PHARMACEUTICALS USA INC
Approved: Feb 9, 2005 | RLD: No | RS: Yes | Type: RX